FAERS Safety Report 5322560-9 (Version None)
Quarter: 2007Q2

REPORT INFORMATION
  Report Type: 
  Country: None (occurrence: None)
  Receive Date: 20070511
  Receipt Date: 20070502
  Transmission Date: 20071010
  Serious: Yes (Other)
  Sender: FDA-Public Use
  Company Number: US-ASTRAZENECA-2007UW09613

PATIENT
  Age: 568 Month
  Sex: Male

DRUGS (2)
  1. SEROQUEL [Suspect]
     Indication: SLEEP DISORDER
     Dates: start: 20020626, end: 20060801
  2. RISPERDAL [Suspect]

REACTIONS (3)
  - DIABETES MELLITUS INSULIN-DEPENDENT [None]
  - NEUROPATHY [None]
  - PANCREATITIS ACUTE [None]
